FAERS Safety Report 5846403-X (Version None)
Quarter: 2008Q3

REPORT INFORMATION
  Report Type: 
  Country: None (occurrence: None)
  Receive Date: 20080815
  Receipt Date: 20080806
  Transmission Date: 20090109
  Serious: Yes (Other)
  Sender: FDA-Public Use
  Company Number: GB-AMGEN-US300011

PATIENT
  Sex: Female

DRUGS (1)
  1. ENBREL [Suspect]
     Indication: PSORIASIS
     Dosage: 25 MG PREFILLED SYRINGE 2 IN 1 WEEK
     Route: 058
     Dates: start: 20070601

REACTIONS (1)
  - DRUG EFFECT DECREASED [None]
